FAERS Safety Report 4893720-6 (Version None)
Quarter: 2006Q1

REPORT INFORMATION
  Report Type: 
  Country: None (occurrence: None)
  Receive Date: 20060127
  Receipt Date: 20051215
  Transmission Date: 20060701
  Serious: Yes (Life-Threatening, Hospitalization, Disabling, Other)
  Sender: FDA-Public Use
  Company Number: GB-GLAXOSMITHKLINE-B0403959A

PATIENT
  Age: 36 Year
  Sex: Male

DRUGS (1)
  1. ZYBAN [Suspect]
     Route: 048
     Dates: start: 20040920

REACTIONS (5)
  - DYSPNOEA [None]
  - HYPOAESTHESIA ORAL [None]
  - PLEURITIC PAIN [None]
  - SWELLING FACE [None]
  - WHEEZING [None]
